FAERS Safety Report 5866872-9 (Version None)
Quarter: 2008Q3

REPORT INFORMATION
  Report Type: 
  Country: None (occurrence: None)
  Receive Date: 20080902
  Receipt Date: 20080902
  Transmission Date: 20090109
  Serious: No
  Sender: FDA-Public Use
  Company Number: None

PATIENT
  Sex: Female
  Weight: 95.2554 kg

DRUGS (2)
  1. HEPARIN [Suspect]
     Indication: EMBOLISM VENOUS
     Dosage: 18,000 UNITS BID SQ
     Route: 058
     Dates: start: 20080501, end: 20080529
  2. HEPARIN [Suspect]
     Indication: HYPERCOAGULATION
     Dosage: 18,000 UNITS BID SQ
     Route: 058
     Dates: start: 20080501, end: 20080529

REACTIONS (2)
  - PRURITUS [None]
  - URTICARIA [None]
